FAERS Safety Report 11459849 (Version 2)
Quarter: 2015Q3

REPORT INFORMATION
  Report Type: Spontaneous
  Country: BR (occurrence: BR)
  Receive Date: 20150904
  Receipt Date: 20150910
  Transmission Date: 20151125
  Serious: Yes (Other)
  Sender: FDA-Public Use
  Company Number: BR-PFIZER INC-2015286409

PATIENT
  Sex: Female

DRUGS (3)
  1. LYRICA [Suspect]
     Active Substance: PREGABALIN
     Indication: INTERVERTEBRAL DISC PROTRUSION
     Dosage: UNK
     Route: 048
  2. LYRICA [Suspect]
     Active Substance: PREGABALIN
     Dosage: UNK
     Route: 048
  3. TRAMAL [Concomitant]
     Active Substance: TRAMADOL

REACTIONS (9)
  - Swelling face [Not Recovered/Not Resolved]
  - Dysgeusia [Unknown]
  - Eye disorder [Unknown]
  - Abdominal discomfort [Not Recovered/Not Resolved]
  - Malaise [Unknown]
  - Eye swelling [Unknown]
  - Intentional product misuse [Unknown]
  - Yellow skin [Not Recovered/Not Resolved]
  - Hepatitis [Not Recovered/Not Resolved]
